FAERS Safety Report 17624291 (Version 1)
Quarter: 2020Q2

REPORT INFORMATION
  Report Type: Report from Study
  Country: BR (occurrence: BR)
  Receive Date: 20200403
  Receipt Date: 20200403
  Transmission Date: 20200713
  Serious: Yes (Other)
  Sender: FDA-Public Use
  Company Number: NVSC2020BR091548

PATIENT
  Sex: Female

DRUGS (1)
  1. ONBRIZE [Suspect]
     Active Substance: INDACATEROL MALEATE
     Indication: PRODUCT USED FOR UNKNOWN INDICATION
     Dosage: 150 MG
     Route: 055

REACTIONS (1)
  - Cataract [Unknown]
